FAERS Safety Report 5294763-3 (Version None)
Quarter: 2007Q2

REPORT INFORMATION
  Report Type: 
  Country: None (occurrence: None)
  Receive Date: 20070406
  Receipt Date: 20070329
  Transmission Date: 20071010
  Serious: Yes (Disabling, Other)
  Sender: FDA-Public Use
  Company Number: 231089K07USA

PATIENT
  Age: 33 Year
  Sex: Female

DRUGS (7)
  1. REBIF [Suspect]
     Indication: MULTIPLE SCLEROSIS
     Dosage: 44 MCG, 3 IN 1 WEEKS, SUBCUTANEOUS
     Route: 058
     Dates: start: 20030613
  2. METFORMIN [Concomitant]
  3. CADUET (CADUET) [Concomitant]
  4. ACIPHEX [Concomitant]
  5. DAIRYCARE (ALL OTHER THERAPEUTIC PRODUCTS) [Concomitant]
  6. TIZANIDINE HCL [Concomitant]
  7. SOMA [Concomitant]

REACTIONS (5)
  - BLINDNESS TRANSIENT [None]
  - BLINDNESS UNILATERAL [None]
  - OPTIC NEURITIS [None]
  - VISION BLURRED [None]
  - VISUAL DISTURBANCE [None]
